FAERS Safety Report 18443335 (Version 1)
Quarter: 2020Q4

REPORT INFORMATION
  Report Type: Spontaneous
  Country: US (occurrence: US)
  Receive Date: 20201029
  Receipt Date: 20201029
  Transmission Date: 20210114
  Serious: Yes (Other)
  Sender: FDA-Public Use
  Company Number: US-PURDUE-USA-2020-0172403

PATIENT
  Sex: Male

DRUGS (2)
  1. HYDROCODONE BITARTRATE AND ACETAMINOPHEN [Suspect]
     Active Substance: ACETAMINOPHEN\HYDROCODONE BITARTRATE
     Indication: PRODUCT USED FOR UNKNOWN INDICATION
     Dosage: UNK
     Route: 048
  2. NORCO [Suspect]
     Active Substance: ACETAMINOPHEN\HYDROCODONE BITARTRATE
     Indication: PAIN
     Dosage: 5-325 MG, Q4- 6H
     Route: 065

REACTIONS (19)
  - Overdose [Unknown]
  - Rectal haemorrhage [Unknown]
  - Mental disorder [Unknown]
  - Anxiety [Unknown]
  - Unevaluable event [Unknown]
  - Drug dependence [Unknown]
  - Haematemesis [Unknown]
  - Haematochezia [Unknown]
  - Fatigue [Unknown]
  - Depression [Unknown]
  - Irritability [Unknown]
  - Pain [Unknown]
  - Abnormal faeces [Unknown]
  - Emotional distress [Unknown]
  - Stress [Unknown]
  - Malaise [Unknown]
  - Road traffic accident [Unknown]
  - Abdominal pain [Unknown]
  - Weight decreased [Unknown]
